FAERS Safety Report 24782729 (Version 1)
Quarter: 2024Q4

REPORT INFORMATION
  Report Type: Spontaneous
  Country: US (occurrence: US)
  Receive Date: 20241227
  Receipt Date: 20241227
  Transmission Date: 20250115
  Serious: Yes (Hospitalization, Other)
  Sender: PFIZER
  Company Number: US-PFIZER INC-PV202400166323

PATIENT
  Age: 78 Year
  Sex: Female

DRUGS (1)
  1. METHIMAZOLE [Suspect]
     Active Substance: METHIMAZOLE
     Indication: Hyperthyroidism
     Dosage: 10 MG, DAILY
     Route: 048

REACTIONS (3)
  - Hypothyroidism [Recovered/Resolved]
  - Myxoedema [Unknown]
  - Ascites [Unknown]
